FAERS Safety Report 25979460 (Version 1)
Quarter: 2025Q4

REPORT INFORMATION
  Report Type: Spontaneous
  Country: CA (occurrence: CA)
  Receive Date: 20251030
  Receipt Date: 20251030
  Transmission Date: 20260117
  Serious: Yes (Death, Other)
  Sender: AMGEN
  Company Number: CA-AMGEN-CANSP2025210801

PATIENT

DRUGS (8)
  1. FILGRASTIM [Suspect]
     Active Substance: FILGRASTIM
     Indication: Autologous haematopoietic stem cell transplant
     Dosage: UNK
     Route: 065
  2. RITUXIMAB [Suspect]
     Active Substance: RITUXIMAB
     Indication: Viraemia
     Dosage: UNK
     Route: 065
  3. RITUXIMAB [Suspect]
     Active Substance: RITUXIMAB
     Indication: Off label use
  4. CYCLOPHOSPHAMIDE [Concomitant]
     Active Substance: CYCLOPHOSPHAMIDE
     Indication: Graft versus host disease
     Dosage: 50 MILLIGRAM/KILOGRAM, QD, ON DAYS 3 AND 4
  5. CYCLOPHOSPHAMIDE [Concomitant]
     Active Substance: CYCLOPHOSPHAMIDE
     Indication: Prophylaxis
  6. FLUDARABINE [Concomitant]
     Active Substance: FLUDARABINE PHOSPHATE
     Dosage: 30 MILLIGRAM PER MILLILITRE
  7. ALEMTUZUMAB [Concomitant]
     Active Substance: ALEMTUZUMAB
     Dosage: 20 MILLIGRAM, 35 MG/M2/DAY FROM D-5 TO D-2
  8. BUSULFAN [Concomitant]
     Active Substance: BUSULFAN
     Dosage: 3.2 MILLIGRAM/KILOGRAM, ON DAY 5 AND DAY 4

REACTIONS (32)
  - Death [Fatal]
  - Bacterial sepsis [Fatal]
  - Bacterial infection [Fatal]
  - Multiple organ dysfunction syndrome [Fatal]
  - Systemic mycosis [Fatal]
  - Respiratory failure [Fatal]
  - Pneumocystis jirovecii pneumonia [Fatal]
  - Pneumonia respiratory syncytial viral [Fatal]
  - Venoocclusive disease [Fatal]
  - Transplant failure [Unknown]
  - Graft versus host disease in skin [Unknown]
  - Acute graft versus host disease [Unknown]
  - Acute graft versus host disease in intestine [Unknown]
  - Acute graft versus host disease in skin [Recovered/Resolved]
  - Klebsiella bacteraemia [Unknown]
  - Escherichia bacteraemia [Unknown]
  - Alpha haemolytic streptococcal infection [Unknown]
  - Cytomegalovirus infection reactivation [Unknown]
  - Epstein-Barr virus infection reactivation [Unknown]
  - Human polyomavirus infection [Unknown]
  - Viral haemorrhagic cystitis [Recovered/Resolved]
  - Pneumonia fungal [Unknown]
  - Device related thrombosis [Unknown]
  - Myelofibrosis [Unknown]
  - Haematological infection [Unknown]
  - Infection [Unknown]
  - Fusobacterium infection [Unknown]
  - Viraemia [Unknown]
  - Human herpesvirus 6 infection reactivation [Unknown]
  - Stomatitis [Unknown]
  - Vomiting [Unknown]
  - Off label use [Unknown]
